FAERS Safety Report 5401883-9 (Version None)
Quarter: 2007Q3

REPORT INFORMATION
  Report Type: 
  Country: None (occurrence: None)
  Receive Date: 20070731
  Receipt Date: 20070723
  Transmission Date: 20080115
  Serious: Yes (Hospitalization)
  Sender: FDA-Public Use
  Company Number: US-ELI_LILLY_AND_COMPANY-US200707005529

PATIENT
  Age: 72 Year
  Sex: Female

DRUGS (5)
  1. HUMULIN R [Suspect]
     Indication: DIABETES MELLITUS
     Dosage: 10 U, AS NEEDED
  2. HUMULIN R [Suspect]
     Dosage: UNK, UNKNOWN
  3. HUMULIN N [Suspect]
     Indication: DIABETES MELLITUS
     Dosage: 10 U, DAILY (1/D)
  4. HUMULIN N [Suspect]
     Dosage: UNK, UNKNOWN
  5. BYETTA [Concomitant]
     Dates: start: 20070101

REACTIONS (10)
  - ABDOMINAL ADHESIONS [None]
  - BLOOD GLUCOSE INCREASED [None]
  - GASTROOESOPHAGEAL REFLUX DISEASE [None]
  - HIATUS HERNIA [None]
  - LARGE INTESTINE PERFORATION [None]
  - MALAISE [None]
  - NAUSEA [None]
  - PNEUMONIA [None]
  - SMALL INTESTINAL PERFORATION [None]
  - VOMITING PROJECTILE [None]
